FAERS Safety Report 11767187 (Version 2)
Quarter: 2016Q1

REPORT INFORMATION
  Report Type: Spontaneous
  Country: ID (occurrence: ID)
  Receive Date: 20151123
  Receipt Date: 20160314
  Transmission Date: 20160525
  Serious: Yes (Death, Disabling)
  Sender: FDA-Public Use
  Company Number: PHHY2015ID152374

PATIENT

DRUGS (1)
  1. TASIGNA [Suspect]
     Active Substance: NILOTINIB
     Indication: CHRONIC MYELOID LEUKAEMIA
     Dosage: 200 MG, UNK
     Route: 065

REACTIONS (3)
  - Oncologic complication [Fatal]
  - Schizophrenia [Unknown]
  - Pruritus generalised [Unknown]
